FAERS Safety Report 25468688 (Version 1)
Quarter: 2025Q2

REPORT INFORMATION
  Report Type: Spontaneous
  Country: US (occurrence: None)
  Receive Date: 20250621
  Receipt Date: 20250621
  Transmission Date: 20250717
  Serious: Yes (Hospitalization)
  Sender: FDA-CTU
  Company Number: None

PATIENT
  Age: 28 Month
  Sex: Female
  Weight: 11.5 kg

DRUGS (5)
  1. DEXAMETHASONE [Suspect]
     Active Substance: DEXAMETHASONE
  2. LEUCOVORIN CALCIUM [Suspect]
     Active Substance: LEUCOVORIN CALCIUM
  3. MERCAPTOPURINE [Suspect]
     Active Substance: MERCAPTOPURINE
  4. METHOTREXATE [Suspect]
     Active Substance: METHOTREXATE
  5. VINCRISTINE SULFATE [Suspect]
     Active Substance: VINCRISTINE SULFATE

REACTIONS (11)
  - Viral upper respiratory tract infection [None]
  - Neutropenia [None]
  - Bronchiolitis [None]
  - Enterococcus test positive [None]
  - Device related infection [None]
  - Pneumonia [None]
  - Obstructive airways disorder [None]
  - Acute respiratory distress syndrome [None]
  - Sepsis [None]
  - Enterovirus infection [None]
  - Human rhinovirus test positive [None]

NARRATIVE: CASE EVENT DATE: 20250615
